FAERS Safety Report 6755417-7 (Version None)
Quarter: 2010Q2

REPORT INFORMATION
  Report Type: 
  Country: None (occurrence: None)
  Receive Date: 20100604
  Receipt Date: 20100430
  Transmission Date: 20101027
  Serious: Yes (Other)
  Sender: FDA-Public Use
  Company Number: CN-PFIZER INC-2010065190

PATIENT
  Age: 85 Year

DRUGS (2)
  1. DIFLUCAN [Suspect]
     Dosage: 150 MG, 1X/DAY
     Route: 048
  2. DIFLUCAN [Suspect]
     Dosage: 150 MG, ALTERNATE DAY

REACTIONS (2)
  - DRUG INEFFECTIVE [None]
  - INFECTIOUS DISEASE CARRIER [None]
